FAERS Safety Report 9176023 (Version 1)
Quarter: 2013Q1

REPORT INFORMATION
  Report Type: Report from Study
  Country: US (occurrence: US)
  Receive Date: 20130320
  Receipt Date: 20130320
  Transmission Date: 20140127
  Serious: Yes (Other)
  Sender: FDA-Public Use
  Company Number: US-ACTELION-A-US2013-80498

PATIENT
  Age: 11 Year
  Sex: Female

DRUGS (1)
  1. TRACLEER [Suspect]
     Indication: PULMONARY ARTERIAL HYPERTENSION
     Dosage: UNK
     Route: 048

REACTIONS (7)
  - Mechanical ventilation [Recovering/Resolving]
  - Lung disorder [Recovering/Resolving]
  - Pulmonary haemorrhage [Recovering/Resolving]
  - Viral infection [Recovering/Resolving]
  - Bacterial infection [Recovering/Resolving]
  - Cardiac failure chronic [Recovering/Resolving]
  - Disease progression [Recovering/Resolving]
